FAERS Safety Report 5841495-6 (Version None)
Quarter: 2008Q3

REPORT INFORMATION
  Report Type: 
  Country: None (occurrence: None)
  Receive Date: 20080812
  Receipt Date: 20080804
  Transmission Date: 20090109
  Serious: Yes (Hospitalization, Other)
  Sender: FDA-Public Use
  Company Number: US-TEVA-175520USA

PATIENT
  Age: 35 Year
  Sex: Female

DRUGS (5)
  1. PHENYLEPHRINE HYDROCHLORIDE INJECTION, USP 1% 1 ML SDV + 5 ML SDV [Suspect]
     Route: 008
  2. EPINEPHRINE [Suspect]
     Route: 008
  3. EPHEDRINE SUL CAP [Suspect]
     Route: 008
  4. GLYCOPYRRONIUM BROMIDE [Suspect]
  5. LIDOCAINE WITH BICARBONATE [Suspect]
     Route: 008

REACTIONS (2)
  - ARTERIOSPASM CORONARY [None]
  - STRESS CARDIOMYOPATHY [None]
